FAERS Safety Report 22124346 (Version 4)
Quarter: 2023Q2

REPORT INFORMATION
  Report Type: Report from Study
  Country: US (occurrence: US)
  Receive Date: 20230322
  Receipt Date: 20230623
  Transmission Date: 20230721
  Serious: No
  Sender: FDA-Public Use
  Company Number: US-002147023-NVSC2023US064117

PATIENT
  Sex: Female

DRUGS (1)
  1. COSENTYX [Suspect]
     Active Substance: SECUKINUMAB
     Indication: Psoriatic arthropathy
     Dosage: 300 MG, QMO
     Route: 058

REACTIONS (10)
  - Stomatitis [Unknown]
  - Eating disorder [Unknown]
  - Feeling abnormal [Unknown]
  - Gait disturbance [Unknown]
  - Fatigue [Unknown]
  - Infection [Unknown]
  - Drug hypersensitivity [Unknown]
  - Swollen tongue [Unknown]
  - Aphthous ulcer [Unknown]
  - Feeding disorder [Unknown]
